FAERS Safety Report 4644944-4 (Version None)
Quarter: 2005Q2

REPORT INFORMATION
  Report Type: 
  Country: None (occurrence: None)
  Receive Date: 20050422
  Receipt Date: 20050411
  Transmission Date: 20051028
  Serious: Yes (Hospitalization)
  Sender: FDA-Public Use
  Company Number: 213733

PATIENT

DRUGS (2)
  1. RAPTIVA [Suspect]
     Dosage: 1 MG/KG, 1/WEEK
     Dates: start: 20040914
  2. NSAIDS (NON-STEROIDAL ANTI-INFLAMMATORY DRUG NOS) [Concomitant]

REACTIONS (1)
  - HEPATIC CIRRHOSIS [None]
